FAERS Safety Report 18071214 (Version 1)
Quarter: 2020Q3

REPORT INFORMATION
  Report Type: Spontaneous
  Country: US (occurrence: US)
  Receive Date: 20200723
  Receipt Date: 20200723
  Transmission Date: 20201103
  Serious: Yes (Hospitalization)
  Sender: FDA-Public Use
  Company Number: None

PATIENT
  Age: 25 Year
  Sex: Male
  Weight: 61.4 kg

DRUGS (1)
  1. MEDICAL CANNABIS [Suspect]
     Active Substance: CANNABIS SATIVA SUBSP. INDICA TOP

REACTIONS (2)
  - Overdose [None]
  - Cannabinoid hyperemesis syndrome [None]

NARRATIVE: CASE EVENT DATE: 20200712
